FAERS Safety Report 9818048 (Version 1)
Quarter: 2013Q4

REPORT INFORMATION
  Report Type: Spontaneous
  Country: US (occurrence: None)
  Receive Date: 20131223
  Receipt Date: 20131223
  Transmission Date: 20140711
  Serious: No
  Sender: FDA-Public Use
  Company Number: 219783

PATIENT
  Age: 55 Year
  Sex: Female

DRUGS (5)
  1. PICATO [Suspect]
     Indication: ACTINIC KERATOSIS
     Dosage: 1 IN 1 D
     Dates: start: 20121125, end: 20121127
  2. LISINOPRIL [Concomitant]
  3. ADDERAL (OBETROL) [Concomitant]
  4. SINGULAR (MONTELUKAST SODIUM) [Concomitant]
  5. ADVAIR (SERETIDE) [Concomitant]

REACTIONS (3)
  - Application site vesicles [None]
  - Application site erythema [None]
  - Application site swelling [None]
